FAERS Safety Report 17695386 (Version 2)
Quarter: 2021Q4

REPORT INFORMATION
  Report Type: Spontaneous
  Country: US (occurrence: US)
  Receive Date: 20200423
  Receipt Date: 20211227
  Transmission Date: 20220303
  Serious: Yes (Other)
  Sender: FDA-Public Use
  Company Number: US-NAPPMUNDI-USA-2020-0150111

PATIENT
  Sex: Male

DRUGS (1)
  1. OXYCONTIN [Suspect]
     Active Substance: OXYCODONE HYDROCHLORIDE
     Indication: Pelvic fracture
     Dosage: UNKNOWN
     Route: 048
     Dates: start: 2013

REACTIONS (3)
  - Overdose [Recovered/Resolved]
  - Drug dependence [Recovering/Resolving]
  - Unevaluable event [Unknown]
